FAERS Safety Report 23112287 (Version 2)
Quarter: 2024Q1

REPORT INFORMATION
  Report Type: Spontaneous
  Country: US (occurrence: US)
  Receive Date: 20231026
  Receipt Date: 20240125
  Transmission Date: 20240410
  Serious: No
  Sender: FDA-Public Use
  Company Number: US-AMGEN-USASP2023191089

PATIENT
  Sex: Female

DRUGS (1)
  1. ARANESP [Suspect]
     Active Substance: DARBEPOETIN ALFA
     Indication: Product used for unknown indication
     Dosage: 25 MICROGRAM, PER 0.42 MILLILITER
     Route: 065

REACTIONS (2)
  - Drug dose omission by device [Unknown]
  - Needle issue [Unknown]

NARRATIVE: CASE EVENT DATE: 20231025
